FAERS Safety Report 5276406-8 (Version None)
Quarter: 2007Q1

REPORT INFORMATION
  Report Type: 
  Country: None (occurrence: None)
  Receive Date: 20061213
  Receipt Date: 20040120
  Transmission Date: 20070707
  Serious: Yes (Hospitalization)
  Sender: FDA-Public Use
  Company Number: 2004UW01034

PATIENT

DRUGS (1)
  1. SEROQUEL [Suspect]
     Dosage: 1500 MG DAILY PO
     Route: 048

REACTIONS (1)
  - CONVULSION [None]
